FAERS Safety Report 6181881-0 (Version None)
Quarter: 2009Q2

REPORT INFORMATION
  Report Type: 
  Country: None (occurrence: None)
  Receive Date: 20090415
  Receipt Date: 20090409
  Transmission Date: 20091009
  Serious: Yes (Hospitalization, Other)
  Sender: FDA-Public Use
  Company Number: THYM-1000720

PATIENT
  Age: 50 Year
  Sex: Male

DRUGS (6)
  1. THYMOGLOBULIN [Suspect]
     Indication: PROPHYLAXIS AGAINST TRANSPLANT REJECTION
     Dosage: 75 MG, INTRAVENOUS
     Route: 042
     Dates: start: 20080331, end: 20080405
  2. THYMOGLOBULIN [Suspect]
  3. TACROLIMUS [Concomitant]
  4. METHYLPREDNISOLONE 16MG TAB [Concomitant]
  5. METHYLPREDNISOLONE 16MG TAB [Concomitant]
  6. MYCOPHENOLATE MOFETIL [Concomitant]

REACTIONS (2)
  - GRAFT DYSFUNCTION [None]
  - THROMBOTIC MICROANGIOPATHY [None]
